FAERS Safety Report 5483246-3 (Version None)
Quarter: 2007Q4

REPORT INFORMATION
  Report Type: 
  Country: None (occurrence: None)
  Receive Date: 20071009
  Receipt Date: 20070925
  Transmission Date: 20080405
  Serious: Yes (Life-Threatening)
  Sender: FDA-Public Use
  Company Number: GXKR2007GB08336

PATIENT
  Age: 27 Year
  Sex: Male
  Weight: 89 kg

DRUGS (1)
  1. FLUOXETINE [Suspect]
     Indication: DEPRESSION
     Dosage: 20 MG, ORAL
     Route: 048
     Dates: end: 20070816

REACTIONS (2)
  - NEUTROPENIA [None]
  - PYREXIA [None]
